FAERS Safety Report 16376045 (Version 1)
Quarter: 2019Q2

REPORT INFORMATION
  Report Type: Spontaneous
  Country: DE (occurrence: DZ)
  Receive Date: 20190531
  Receipt Date: 20190531
  Transmission Date: 20190711
  Serious: Yes (Life-Threatening, Hospitalization, Other)
  Sender: FDA-Public Use
  Company Number: DE-ACCORD-130334

PATIENT
  Age: 62 Year
  Sex: Male

DRUGS (5)
  1. HYDROCHLOROTHIAZIDE. [Concomitant]
     Active Substance: HYDROCHLOROTHIAZIDE
     Indication: HYPERTENSION
     Dosage: ANTIHYPERTENSIVE THERAPY REGIMEN WAS INTENSIFIED,ADEQUATE DOSAGES
  2. AMLODIPINE [Concomitant]
     Active Substance: AMLODIPINE BESYLATE
     Indication: HYPERTENSION
     Dosage: ADEQUATE DOSAGES, ANTIHYPERTENSIVE THERAPY REGIMEN WAS INTENSIFIED
  3. CARVEDILOL/CARVEDILOL HYDROCHLODRIDE [Concomitant]
     Indication: HYPERTENSION
     Dosage: ANTIHYPERTENSIVE THERAPY REGIMEN WAS INTENSIFIED, ADEQUATE DOSAGES
  4. RAMIPRIL. [Suspect]
     Active Substance: RAMIPRIL
     Indication: HYPERTENSION
     Dosage: DOUBLING OF THE RAMIPRIL DOSE (ANTIHYPERTENSIVE THERAPY REGIMEN WAS INTENSIFIED) ADEQUATE DOSAGES
  5. CLONIDINE. [Concomitant]
     Active Substance: CLONIDINE
     Indication: HYPERTENSION
     Dosage: ADEQUATE DOSAGES,ANTIHYPERTENSIVE THERAPY REGIMEN WAS INTENSIFIED

REACTIONS (2)
  - Renal impairment [Recovering/Resolving]
  - Condition aggravated [Recovering/Resolving]
